FAERS Safety Report 24232128 (Version 1)
Quarter: 2024Q3

REPORT INFORMATION
  Report Type: Spontaneous
  Country: CN (occurrence: CN)
  Receive Date: 20240821
  Receipt Date: 20240821
  Transmission Date: 20241017
  Serious: Yes (Hospitalization)
  Sender: BAYER
  Company Number: CN-BAYER-2024A117655

PATIENT
  Age: 90 Year
  Sex: Male
  Weight: 56 kg

DRUGS (15)
  1. MOXIFLOXACIN [Suspect]
     Active Substance: MOXIFLOXACIN
     Indication: Pulmonary tuberculosis
     Dosage: 0.4 G, QD
     Route: 042
     Dates: start: 20230508, end: 20230509
  2. MOXIFLOXACIN [Suspect]
     Active Substance: MOXIFLOXACIN
     Indication: Pulmonary tuberculosis
     Dosage: 400 MG, QD
     Route: 048
     Dates: start: 20230510, end: 20230620
  3. MOXIFLOXACIN [Suspect]
     Active Substance: MOXIFLOXACIN
     Indication: Pulmonary tuberculosis
     Dosage: 400 MG, QD
     Route: 048
     Dates: start: 20230726
  4. BEDAQUILINE [Suspect]
     Active Substance: BEDAQUILINE
     Indication: Pulmonary tuberculosis
     Dosage: 400 MG, QD
     Route: 048
     Dates: start: 20230510, end: 20230523
  5. BEDAQUILINE [Suspect]
     Active Substance: BEDAQUILINE
     Indication: Pulmonary tuberculosis
     Dosage: 200 MG, TID
     Route: 048
     Dates: start: 20230524, end: 20230620
  6. CONTEZOLID [Suspect]
     Active Substance: CONTEZOLID
     Indication: Pulmonary tuberculosis
     Dosage: 400 MG, BID
     Route: 048
     Dates: start: 20230510, end: 20230529
  7. CONTEZOLID [Suspect]
     Active Substance: CONTEZOLID
     Indication: Pulmonary tuberculosis
     Dosage: 400 MG, BID
     Route: 048
     Dates: start: 20230726
  8. CYCLOSERINE [Suspect]
     Active Substance: CYCLOSERINE
     Indication: Pulmonary tuberculosis
     Dosage: 0.25 G, QOD
     Dates: start: 20230510, end: 20230620
  9. CYCLOSERINE [Suspect]
     Active Substance: CYCLOSERINE
     Indication: Pulmonary tuberculosis
     Dosage: 0.25 G, BID
     Dates: start: 20230726
  10. VALSARTAN [Concomitant]
     Active Substance: VALSARTAN
     Indication: Blood pressure management
     Dosage: 80 MG, QD
     Route: 048
     Dates: start: 20230508
  11. ATORVASTATIN [Concomitant]
     Active Substance: ATORVASTATIN
     Dosage: 20 MG, QD
     Route: 048
     Dates: start: 20230508
  12. POTASSIUM CHLORIDE [Concomitant]
     Active Substance: POTASSIUM CHLORIDE
     Dosage: 10 ML, TID
     Route: 048
     Dates: start: 20230508
  13. SPIRONOLACTONE [Concomitant]
     Active Substance: SPIRONOLACTONE
     Dosage: 20 MG, QD
     Route: 048
     Dates: start: 20230508, end: 20230510
  14. FUROSEMIDE [Concomitant]
     Active Substance: FUROSEMIDE
     Dosage: 20 MG, QD
     Dates: start: 20230508
  15. CEFOPERAZONE SODIUM\SULBACTAM SODIUM [Concomitant]
     Active Substance: CEFOPERAZONE SODIUM\SULBACTAM SODIUM
     Indication: C-reactive protein increased
     Dosage: 2.0 G, BID
     Dates: start: 20230509, end: 20230510

REACTIONS (8)
  - Sinus arrhythmia [None]
  - Pulmonary tuberculosis [Recovering/Resolving]
  - Pleural effusion [Recovered/Resolved]
  - Electrocardiogram QT prolonged [None]
  - Anaemia [Recovering/Resolving]
  - Blood creatinine increased [None]
  - Off label use [None]
  - Drug effective for unapproved indication [None]

NARRATIVE: CASE EVENT DATE: 20230510
